FAERS Safety Report 15573858 (Version 3)
Quarter: 2018Q4

REPORT INFORMATION
  Report Type: Spontaneous
  Country: US (occurrence: US)
  Receive Date: 20181101
  Receipt Date: 20181108
  Transmission Date: 20190205
  Serious: Yes (Other)
  Sender: FDA-Public Use
  Company Number: PHEH2018US045724

PATIENT

DRUGS (3)
  1. BIAXIN [Suspect]
     Active Substance: CLARITHROMYCIN
     Indication: MYCOBACTERIUM AVIUM COMPLEX INFECTION
     Dosage: UNK
     Route: 065
  2. RIFAMPIN. [Suspect]
     Active Substance: RIFAMPIN
     Indication: MYCOBACTERIUM AVIUM COMPLEX INFECTION
     Dosage: UNK
     Route: 065
  3. ETHAMBUTOL [Suspect]
     Active Substance: ETHAMBUTOL HYDROCHLORIDE
     Indication: MYCOBACTERIUM AVIUM COMPLEX INFECTION
     Dosage: UNK
     Route: 065

REACTIONS (3)
  - Osteomyelitis [Unknown]
  - Spinal cord abscess [Unknown]
  - Disease progression [Unknown]

NARRATIVE: CASE EVENT DATE: 20180821
